FAERS Safety Report 7517937-7 (Version None)
Quarter: 2011Q2

REPORT INFORMATION
  Report Type: 
  Country: None (occurrence: None)
  Receive Date: 20110523
  Receipt Date: 20110512
  Transmission Date: 20111010
  Serious: Yes (Hospitalization, Other)
  Sender: FDA-Public Use
  Company Number: ACO_24330_2010

PATIENT
  Age: 50 Year
  Sex: Female
  Weight: 65.8 kg

DRUGS (7)
  1. TRANSDERMAL PATCH, UNSPECIFIED [Concomitant]
  2. METAMUCIL /00029101/ (PLANTAGO OVATA) [Concomitant]
  3. PRILOSEC [Concomitant]
  4. AMPYRA [Suspect]
     Indication: MULTIPLE SCLEROSIS
     Dosage: 10 MG, BID, ORAL
     Route: 048
     Dates: start: 20100101, end: 20100420
  5. LISINOPRIL [Concomitant]
  6. POTASSIUM CHLORIDE [Concomitant]
  7. FOLIC ACID [Concomitant]

REACTIONS (10)
  - LOSS OF CONSCIOUSNESS [None]
  - FAECALOMA [None]
  - ALTERED STATE OF CONSCIOUSNESS [None]
  - SHOCK [None]
  - SEPSIS [None]
  - ABNORMAL BEHAVIOUR [None]
  - COGNITIVE DISORDER [None]
  - THINKING ABNORMAL [None]
  - THERAPEUTIC RESPONSE UNEXPECTED [None]
  - CONVULSION [None]
